FAERS Safety Report 20611256 (Version 1)
Quarter: 2022Q1

REPORT INFORMATION
  Report Type: Spontaneous
  Country: US (occurrence: None)
  Receive Date: 20220318
  Receipt Date: 20220318
  Transmission Date: 20220423
  Serious: Yes (Hospitalization)
  Sender: FDA-Public Use
  Company Number: None

PATIENT
  Age: 72 Year
  Sex: Female
  Weight: 56.8 kg

DRUGS (3)
  1. ELOXATIN [Suspect]
     Active Substance: OXALIPLATIN
     Dates: end: 20210525
  2. FLUOROURACIL [Suspect]
     Active Substance: FLUOROURACIL
     Dates: end: 20210527
  3. LEUCOVORIN CALCIUM [Suspect]
     Active Substance: LEUCOVORIN CALCIUM
     Dates: end: 20210525

REACTIONS (6)
  - Abdominal discomfort [None]
  - Nausea [None]
  - Ileus [None]
  - Intestinal obstruction [None]
  - Sciatica [None]
  - Diarrhoea [None]

NARRATIVE: CASE EVENT DATE: 20210527
